FAERS Safety Report 25417920 (Version 6)
Quarter: 2025Q3

REPORT INFORMATION
  Report Type: Spontaneous
  Country: EU (occurrence: EU)
  Receive Date: 20250610
  Receipt Date: 20250707
  Transmission Date: 20251021
  Serious: Yes (Other)
  Sender: PFIZER
  Company Number: EU-TAKEDA-2025TUS051122

PATIENT
  Age: 67 Year
  Sex: Female

DRUGS (2)
  1. PANTOPRAZOLE [Suspect]
     Active Substance: PANTOPRAZOLE
     Indication: Gastrooesophageal reflux disease
     Dosage: 40 MG, 1X/DAY
  2. PANTOPRAZOLE [Suspect]
     Active Substance: PANTOPRAZOLE
     Indication: Diarrhoea

REACTIONS (3)
  - Enterocolitis [Recovered/Resolved]
  - Intestinal villi atrophy [Recovered/Resolved]
  - Intestinal intraepithelial lymphocytes increased [Recovered/Resolved]
